FAERS Safety Report 21942816 (Version 1)
Quarter: 2023Q1

REPORT INFORMATION
  Report Type: Report from Study
  Country: BR (occurrence: BR)
  Receive Date: 20230202
  Receipt Date: 20230202
  Transmission Date: 20230417
  Serious: Yes (Other)
  Sender: FDA-Public Use
  Company Number: BR-002147023-NVSC2023BR020652

PATIENT
  Sex: Female

DRUGS (1)
  1. DIOVAN HCT [Suspect]
     Active Substance: HYDROCHLOROTHIAZIDE\VALSARTAN
     Indication: Product used for unknown indication
     Dosage: 160/12.5 MG (STARTED 10 YEARS AGO)
     Route: 065

REACTIONS (3)
  - Dementia [Not Recovered/Not Resolved]
  - Gait inability [Not Recovered/Not Resolved]
  - COVID-19 [Not Recovered/Not Resolved]
